FAERS Safety Report 10884565 (Version 1)
Quarter: 2015Q1

REPORT INFORMATION
  Report Type: Spontaneous
  Country: US (occurrence: US)
  Receive Date: 20150304
  Receipt Date: 20150304
  Transmission Date: 20150721
  Serious: Yes (Other)
  Sender: FDA-Public Use
  Company Number: US-TEVA-545211USA

PATIENT

DRUGS (1)
  1. DIAMOX SEQUELS [Suspect]
     Active Substance: ACETAZOLAMIDE
     Indication: INTRACRANIAL PRESSURE INCREASED
     Route: 065

REACTIONS (6)
  - Product substitution issue [Unknown]
  - Papilloedema [Unknown]
  - Headache [Unknown]
  - Musculoskeletal stiffness [Unknown]
  - Tinnitus [Unknown]
  - Product use issue [Unknown]
